FAERS Safety Report 12875126 (Version 1)
Quarter: 2016Q4

REPORT INFORMATION
  Report Type: Spontaneous
  Country: US (occurrence: US)
  Receive Date: 20161024
  Receipt Date: 20161024
  Transmission Date: 20170207
  Serious: No
  Sender: FDA-Public Use
  Company Number: US-BEH-2015054873

PATIENT
  Age: 55 Year
  Sex: Female
  Weight: 50.3 kg

DRUGS (1)
  1. HUMATE [Suspect]
     Active Substance: HUMAN COAGULATION FACTOR VIII/VON WILLEBRAND FACTOR COMPLEX
     Indication: VON WILLEBRAND^S DISEASE
     Route: 042
     Dates: start: 20150819, end: 20151016

REACTIONS (8)
  - Urine abnormality [Unknown]
  - Metamorphopsia [Unknown]
  - Unevaluable event [Unknown]
  - Parosmia [Unknown]
  - Vomiting [Unknown]
  - Renal pain [Unknown]
  - Feeling abnormal [Unknown]
  - Nausea [Unknown]
